FAERS Safety Report 15796998 (Version 1)
Quarter: 2019Q1

REPORT INFORMATION
  Report Type: Spontaneous
  Country: US (occurrence: US)
  Receive Date: 20190108
  Receipt Date: 20190108
  Transmission Date: 20190417
  Serious: No
  Sender: FDA-Public Use
  Company Number: US-BAUSCH-BL-2017-031131

PATIENT
  Sex: Female
  Weight: 81.27 kg

DRUGS (1)
  1. XENAZINE [Suspect]
     Active Substance: TETRABENAZINE
     Indication: HUNTINGTON^S DISEASE
     Route: 065
     Dates: start: 201503

REACTIONS (4)
  - Muscular weakness [Unknown]
  - Gait disturbance [Unknown]
  - Fall [Unknown]
  - Pain in extremity [Unknown]
